FAERS Safety Report 7075232-7 (Version None)
Quarter: 2010Q4

REPORT INFORMATION
  Report Type: 
  Country: None (occurrence: None)
  Receive Date: 20101030
  Receipt Date: 20100524
  Transmission Date: 20110411
  Serious: No
  Sender: FDA-Public Use
  Company Number: US-WYE-H15383110

PATIENT
  Age: 46 Year
  Sex: Female
  Weight: 54.48 kg

DRUGS (2)
  1. ALAVERT [Suspect]
     Indication: HYPERSENSITIVITY
     Route: 048
     Dates: start: 20100524, end: 20100524
  2. ACETAMINOPHEN [Concomitant]

REACTIONS (1)
  - CLUSTER HEADACHE [None]
